FAERS Safety Report 8175237-9 (Version None)
Quarter: 2012Q1

REPORT INFORMATION
  Report Type: 
  Country: None (occurrence: None)
  Receive Date: 20120229
  Receipt Date: 20120220
  Transmission Date: 20120608
  Serious: Yes (Other)
  Sender: FDA-Public Use
  Company Number: US-ABBOTT-12P-163-0906294-00

PATIENT
  Sex: Male
  Weight: 94.886 kg

DRUGS (4)
  1. CRESTOR [Concomitant]
     Indication: PRODUCT USED FOR UNKNOWN INDICATION
     Dosage: AT NIGHTTIME WITH NIASPAN
  2. NIASPAN [Suspect]
     Indication: BLOOD CHOLESTEROL INCREASED
     Dosage: AT BEDTIME
     Dates: start: 20100101
  3. TESTIM [Concomitant]
     Indication: PRODUCT USED FOR UNKNOWN INDICATION
     Dosage: GEL IN MORNING APPLIED TO UPPER ARMS OR SHOULDERS
  4. BENAZEPRIL HYDROCHLORIDE [Concomitant]
     Indication: PRODUCT USED FOR UNKNOWN INDICATION
     Dosage: DAILY IN THE MORNING

REACTIONS (5)
  - PARAESTHESIA [None]
  - PRURITUS [None]
  - TONSILLECTOMY [None]
  - SINUS OPERATION [None]
  - FEELING HOT [None]
